FAERS Safety Report 19205132 (Version 1)
Quarter: 2021Q2

REPORT INFORMATION
  Report Type: Other
  Country: US (occurrence: US)
  Receive Date: 20210503
  Receipt Date: 20210503
  Transmission Date: 20210717
  Serious: No
  Sender: FDA-Public Use
  Company Number: US-NEUROCRINE BIOSCIENCES INC.-2021NBI01973

PATIENT

DRUGS (4)
  1. INGREZZA [Suspect]
     Active Substance: VALBENAZINE
     Indication: TARDIVE DYSKINESIA
     Dosage: 80 MILLIGRAM, QD
     Route: 048
     Dates: start: 20210217, end: 2021
  2. BUPROPION. [Concomitant]
     Active Substance: BUPROPION
     Dosage: 300 MILLIGRAM, QD
     Route: 048
  3. REXULTI [Concomitant]
     Active Substance: BREXPIPRAZOLE
     Dosage: 3 MILLIGRAM, QD
     Route: 048
  4. VRAYLAR [Concomitant]
     Active Substance: CARIPRAZINE
     Dosage: 1.5 MILLIGRAM, QD
     Route: 048

REACTIONS (1)
  - Somnolence [Recovered/Resolved]

NARRATIVE: CASE EVENT DATE: 2021
